FAERS Safety Report 25356631 (Version 1)
Quarter: 2025Q2

REPORT INFORMATION
  Report Type: Spontaneous
  Country: US (occurrence: US)
  Receive Date: 20250526
  Receipt Date: 20250526
  Transmission Date: 20250717
  Serious: No
  Sender: ROCHE
  Company Number: US-ROCHE-10000289807

PATIENT
  Age: 15 Year
  Sex: Female
  Weight: 68.04 kg

DRUGS (2)
  1. ACTEMRA [Suspect]
     Active Substance: TOCILIZUMAB
     Indication: Heart transplant
     Route: 058
     Dates: start: 2024
  2. DARATUMUMAB [Concomitant]
     Active Substance: DARATUMUMAB
     Indication: Heart transplant
     Route: 042

REACTIONS (4)
  - Off label use [Unknown]
  - Product dose omission issue [Unknown]
  - Device issue [Unknown]
  - No adverse event [Unknown]

NARRATIVE: CASE EVENT DATE: 20240101
